FAERS Safety Report 14994047 (Version 1)
Quarter: 2018Q2

REPORT INFORMATION
  Report Type: Spontaneous
  Country: FR (occurrence: FR)
  Receive Date: 20180611
  Receipt Date: 20180611
  Transmission Date: 20180711
  Serious: Yes (Other)
  Sender: FDA-Public Use
  Company Number: FR-MERCK KGAA-2049231

PATIENT
  Age: 63 Year
  Sex: Female
  Weight: 95 kg

DRUGS (2)
  1. NOVOTHYROX [Suspect]
     Active Substance: LEVOTHYROXINE SODIUM
     Indication: THYROIDECTOMY
     Route: 048
     Dates: start: 20170529, end: 20171016
  2. EUTHYROX [Concomitant]
     Active Substance: LEVOTHYROXINE SODIUM
     Route: 048
     Dates: start: 201710

REACTIONS (9)
  - Blood thyroid stimulating hormone increased [Recovered/Resolved]
  - Incoherent [Recovered/Resolved]
  - Depression [Recovered/Resolved]
  - Amnesia [Recovered/Resolved]
  - Somnolence [Recovering/Resolving]
  - Palpitations [Recovered/Resolved]
  - Fatigue [Recovering/Resolving]
  - Dyspnoea [Recovered/Resolved]
  - Alopecia [Recovered/Resolved]

NARRATIVE: CASE EVENT DATE: 201706
